FAERS Safety Report 25503598 (Version 1)
Quarter: 2025Q3

REPORT INFORMATION
  Report Type: Report from Study
  Country: US (occurrence: US)
  Receive Date: 20250702
  Receipt Date: 20250702
  Transmission Date: 20251020
  Serious: Yes (Other)
  Sender: ABBVIE
  Company Number: US-ABBVIE-6351809

PATIENT
  Age: 81 Year
  Sex: Female

DRUGS (1)
  1. VENCLEXTA [Suspect]
     Active Substance: VENETOCLAX
     Indication: Acute leukaemia
     Dosage: FORM STRENGTH: 100 MG, TAKE 1 TABLET BY MOUTH ONCE DAILY WITH FOOD AND?FULL GLASS OF WATER ON DAY...
     Route: 048

REACTIONS (2)
  - Transfusion [Unknown]
  - Off label use [Unknown]
